FAERS Safety Report 5806777-2 (Version None)
Quarter: 2008Q3

REPORT INFORMATION
  Report Type: 
  Country: None (occurrence: None)
  Receive Date: 20080711
  Receipt Date: 20080701
  Transmission Date: 20090109
  Serious: Yes (Other)
  Sender: FDA-Public Use
  Company Number: US-JNJFOC-20080101301

PATIENT
  Sex: Male
  Weight: 81.65 kg

DRUGS (9)
  1. DURAGESIC-100 [Suspect]
     Route: 062
  2. DURAGESIC-100 [Suspect]
     Indication: PAIN
     Route: 062
  3. FENTANYL TRANSDERMAL SYSTEM [Suspect]
     Route: 062
  4. FENTANYL TRANSDERMAL SYSTEM [Suspect]
     Route: 062
  5. FENTANYL TRANSDERMAL SYSTEM [Suspect]
     Indication: PAIN
     Route: 062
  6. ANTIDEPRESSANTS [Suspect]
     Indication: DEPRESSION
     Route: 065
  7. ATENOLOL [Concomitant]
     Indication: HYPERTENSION
     Route: 048
  8. VICODIN [Concomitant]
     Indication: PAIN
     Dosage: 7.5/750MG, 3 DAILY
     Route: 048
  9. HYDROMORPHONE HCL [Concomitant]
     Indication: PAIN
     Dosage: AS NEEDED
     Route: 048

REACTIONS (7)
  - ANXIETY [None]
  - DEPRESSION [None]
  - DRUG PRESCRIBING ERROR [None]
  - EPICONDYLITIS [None]
  - FEELING ABNORMAL [None]
  - WEIGHT DECREASED [None]
  - WITHDRAWAL SYNDROME [None]
